FAERS Safety Report 5165337-X (Version None)
Quarter: 2006Q4

REPORT INFORMATION
  Report Type: 
  Country: None (occurrence: None)
  Receive Date: 20061206
  Receipt Date: 20061115
  Transmission Date: 20070319
  Serious: Yes (Death)
  Sender: FDA-Public Use
  Company Number: JP-BRISTOL-MYERS SQUIBB COMPANY-13580295

PATIENT
  Age: 70 Year
  Sex: Male

DRUGS (12)
  1. BLEOMYCIN [Suspect]
     Indication: PENIS CARCINOMA
     Route: 042
     Dates: start: 19860404, end: 19860404
  2. METHOTREXATE [Suspect]
     Indication: PENIS CARCINOMA
     Route: 042
     Dates: start: 19860329, end: 19860329
  3. BRIPLATIN [Concomitant]
     Route: 041
     Dates: start: 19860320, end: 19860411
  4. SOLU-MEDROL [Concomitant]
     Route: 041
     Dates: start: 19860320, end: 19860411
  5. LASIX [Concomitant]
     Route: 042
     Dates: start: 19860320, end: 19860411
  6. PRIMPERAN TAB [Concomitant]
     Route: 042
     Dates: start: 19860321, end: 19860411
  7. LACTEC [Concomitant]
     Route: 041
     Dates: start: 19860320, end: 19860411
  8. GLUCOSE [Concomitant]
     Route: 041
     Dates: start: 19860320, end: 19860411
  9. ASCORBIC ACID [Concomitant]
     Route: 041
     Dates: start: 19860320, end: 19860411
  10. PASETOCIN [Concomitant]
     Route: 048
     Dates: start: 19860306
  11. TRYPTANOL [Concomitant]
     Route: 041
     Dates: start: 19860405, end: 19860407
  12. MAINTENANCE MEDIUM [Concomitant]
     Route: 041
     Dates: start: 19860320, end: 19860411

REACTIONS (1)
  - PULMONARY FIBROSIS [None]
